FAERS Safety Report 9486705 (Version 1)
Quarter: 2013Q3

REPORT INFORMATION
  Report Type: Spontaneous
  Country: US (occurrence: None)
  Receive Date: 20130827
  Receipt Date: 20130827
  Transmission Date: 20140515
  Serious: Yes (Other)
  Sender: FDA-Public Use
  Company Number: None

PATIENT
  Age: 52 None
  Sex: 0

DRUGS (1)
  1. CIPROFLOXACN [Suspect]
     Indication: COUGH
     Route: 048

REACTIONS (2)
  - Arthralgia [None]
  - Tendon injury [None]
